FAERS Safety Report 10751337 (Version 1)
Quarter: 2015Q1

REPORT INFORMATION
  Report Type: Spontaneous
  Country: US (occurrence: None)
  Receive Date: 20150129
  Receipt Date: 20150129
  Transmission Date: 20150721
  Serious: No
  Sender: FDA-Public Use
  Company Number: None

PATIENT
  Age: 54 Year
  Sex: Female

DRUGS (9)
  1. WARFARIN [Concomitant]
     Active Substance: WARFARIN
  2. BACLOFEN. [Concomitant]
     Active Substance: BACLOFEN
  3. MACRONANLIN [Concomitant]
  4. TECFIDERA [Concomitant]
     Active Substance: DIMETHYL FUMARATE
  5. SOLMEDROL [Concomitant]
  6. AMPYRA [Suspect]
     Active Substance: DALFAMPRIDINE
     Indication: MULTIPLE SCLEROSIS
     Route: 048
     Dates: start: 201005, end: 201410
  7. LASIX [Concomitant]
     Active Substance: FUROSEMIDE
  8. NEURONTIN [Concomitant]
     Active Substance: GABAPENTIN
  9. CIPRO [Concomitant]
     Active Substance: CIPROFLOXACIN HYDROCHLORIDE

REACTIONS (2)
  - No therapeutic response [None]
  - Urinary tract infection [None]

NARRATIVE: CASE EVENT DATE: 20141027
